FAERS Safety Report 9699940 (Version 1)
Quarter: 2013Q4

REPORT INFORMATION
  Report Type: Spontaneous
  Country: CA (occurrence: CA)
  Receive Date: 20131121
  Receipt Date: 20131121
  Transmission Date: 20140711
  Serious: Yes (Other)
  Sender: FDA-Public Use
  Company Number: CA-JNJFOC-20131109191

PATIENT
  Sex: Female
  Weight: 63.5 kg

DRUGS (3)
  1. NICODERM CQ [Suspect]
     Indication: SMOKING CESSATION THERAPY
     Route: 061
  2. NICODERM CQ [Suspect]
     Indication: SMOKING CESSATION THERAPY
     Dosage: THROUGHOUT THE ENTIRE DAY AND NIGHT AS DIRECTED
     Route: 061
     Dates: start: 20131109, end: 20131114
  3. NICORETTE GUM 2MG EXTREME CHILL MENTHOL [Concomitant]
     Indication: SMOKING CESSATION THERAPY
     Route: 048

REACTIONS (3)
  - Suicidal ideation [Recovered/Resolved]
  - Nightmare [Recovered/Resolved]
  - Nicotine dependence [Unknown]
